FAERS Safety Report 20771714 (Version 1)
Quarter: 2022Q2

REPORT INFORMATION
  Report Type: Report from Study
  Country: US (occurrence: US)
  Receive Date: 20220430
  Receipt Date: 20220430
  Transmission Date: 20220721
  Serious: Yes (Other)
  Sender: FDA-Public Use
  Company Number: US-AUROBINDO-AUR-APL-2022-014915

PATIENT

DRUGS (1)
  1. CARBIDOPA [Suspect]
     Active Substance: CARBIDOPA
     Indication: Autonomic nervous system imbalance
     Dosage: 3 TIMES A DAY
     Route: 065

REACTIONS (5)
  - Hallucination [Unknown]
  - Hypotension [Unknown]
  - Chills [Unknown]
  - Confusional state [Unknown]
  - Off label use [Unknown]
